FAERS Safety Report 9831931 (Version 1)
Quarter: 2014Q1

REPORT INFORMATION
  Report Type: Spontaneous
  Country: US (occurrence: US)
  Receive Date: 20140121
  Receipt Date: 20140121
  Transmission Date: 20141002
  Serious: No
  Sender: FDA-Public Use
  Company Number: US-PFIZER INC-2014014941

PATIENT
  Age: 56 Year
  Sex: Male

DRUGS (4)
  1. NITROSTAT [Suspect]
     Dosage: 0.4 MG, UNK
     Route: 060
     Dates: start: 20131217
  2. CARVEDILOL [Concomitant]
     Indication: BLOOD PRESSURE ABNORMAL
     Dosage: UNK
  3. LISINOPRIL [Concomitant]
     Indication: BLOOD PRESSURE ABNORMAL
     Dosage: UNK
  4. FUROSEMIDE [Concomitant]
     Indication: BLOOD PRESSURE ABNORMAL
     Dosage: UNK

REACTIONS (4)
  - Poor quality drug administered [Unknown]
  - Product solubility abnormal [Unknown]
  - Chest pain [Unknown]
  - Abdominal discomfort [Unknown]
